FAERS Safety Report 17250975 (Version 1)
Quarter: 2020Q1

REPORT INFORMATION
  Report Type: Spontaneous
  Country: FR (occurrence: FR)
  Receive Date: 20200109
  Receipt Date: 20200109
  Transmission Date: 20200409
  Serious: Yes (Hospitalization)
  Sender: FDA-Public Use
  Company Number: FR-ACCORD-168977

PATIENT
  Age: 72 Year
  Sex: Female
  Weight: 62 kg

DRUGS (3)
  1. OXALIPLATINE ACCORD [Suspect]
     Active Substance: OXALIPLATIN
     Indication: OVARIAN CANCER
     Route: 041
     Dates: start: 20191015, end: 20191015
  2. ONDANSETRON ACCORD [Concomitant]
     Active Substance: ONDANSETRON
     Indication: PREMEDICATION
     Route: 042
     Dates: start: 20191015, end: 20191015
  3. METHYLPREDNISOLONE MYLAN [Concomitant]
     Active Substance: METHYLPREDNISOLONE
     Indication: PREMEDICATION
     Route: 042
     Dates: start: 20191015, end: 20191015

REACTIONS (5)
  - Erythema [Recovered/Resolved]
  - Infusion related reaction [Recovered/Resolved]
  - Paraesthesia [Recovered/Resolved]
  - Abdominal pain [Recovered/Resolved]
  - Nausea [Recovered/Resolved]

NARRATIVE: CASE EVENT DATE: 20191015
